FAERS Safety Report 5001430-X (Version None)
Quarter: 2006Q2

REPORT INFORMATION
  Report Type: 
  Country: None (occurrence: None)
  Receive Date: 20060512
  Receipt Date: 20050713
  Transmission Date: 20061013
  Serious: Yes (Hospitalization)
  Sender: FDA-Public Use
  Company Number: US-MERCK-0507USA01925

PATIENT
  Age: 51 Year
  Sex: Male
  Weight: 77 kg

DRUGS (10)
  1. VIOXX [Suspect]
     Indication: ARTHRITIS
     Route: 048
     Dates: start: 20010101, end: 20040901
  2. ASPIRIN [Concomitant]
     Route: 065
  3. PLAVIX [Concomitant]
     Route: 048
  4. LIPITOR [Concomitant]
     Route: 065
  5. COREG [Concomitant]
     Route: 048
  6. NICODERM [Concomitant]
     Route: 065
  7. NICODERM [Concomitant]
     Route: 065
  8. ALTACE [Concomitant]
     Route: 065
  9. FOLTX [Concomitant]
     Route: 048
  10. NITROGLYCERIN [Concomitant]
     Route: 060

REACTIONS (4)
  - ACUTE MYOCARDIAL INFARCTION [None]
  - ANGINA PECTORIS [None]
  - CORONARY ARTERY DISEASE [None]
  - DYSLIPIDAEMIA [None]
